FAERS Safety Report 25281086 (Version 1)
Quarter: 2025Q2

REPORT INFORMATION
  Report Type: Spontaneous
  Country: US (occurrence: US)
  Receive Date: 20250508
  Receipt Date: 20250508
  Transmission Date: 20250716
  Serious: Yes (Hospitalization, Other)
  Sender: APOTEX
  Company Number: US-APOTEX-2025AP006546

PATIENT
  Age: 10 Year
  Sex: Female

DRUGS (3)
  1. ALBUTEROL [Suspect]
     Active Substance: ALBUTEROL
     Indication: Asthma
     Route: 065
  2. MEXILETINE [Concomitant]
     Active Substance: MEXILETINE
     Indication: Myotonia
     Route: 065
  3. MEXILETINE [Concomitant]
     Active Substance: MEXILETINE
     Dosage: 1.7 MILLIGRAM/KILOGRAM, TID
     Route: 065

REACTIONS (2)
  - Myotonia [Recovered/Resolved]
  - Respiratory failure [Recovered/Resolved]
